FAERS Safety Report 9885011 (Version 2)
Quarter: 2014Q1

REPORT INFORMATION
  Report Type: Spontaneous
  Country: US (occurrence: US)
  Receive Date: 20140210
  Receipt Date: 20140221
  Transmission Date: 20141002
  Serious: Yes (Congenital Anomaly, Other)
  Sender: FDA-Public Use
  Company Number: US-UCBSA-111837

PATIENT
  Age: 0 Year
  Sex: Male
  Weight: 3.12 kg

DRUGS (6)
  1. CIMZIA [Suspect]
     Indication: CROHN^S DISEASE
     Dosage: INDUCTION DOSE
     Route: 064
     Dates: start: 20130731, end: 2013
  2. CIMZIA [Suspect]
     Indication: CROHN^S DISEASE
     Dosage: MAINTENENCE DOSE
     Route: 064
     Dates: start: 2013, end: 20130926
  3. LIALDA [Concomitant]
     Dosage: ENTERIC COATED TABLET, STRENGTH: 1.2 G (2 TABLETS EVERY DAY)
     Route: 064
     Dates: end: 2013
  4. VENOFER [Concomitant]
     Route: 064
     Dates: end: 2013
  5. FERROUS SULFATE [Concomitant]
     Route: 064
     Dates: end: 2013
  6. AKA PRENATAL [Concomitant]
     Dosage: STRENGTH: 1 MG, 27-1 MG
     Route: 064
     Dates: end: 2013

REACTIONS (2)
  - Congenital diaphragmatic hernia [Recovering/Resolving]
  - Foetal exposure during pregnancy [Recovered/Resolved]
